FAERS Safety Report 4924832-6 (Version None)
Quarter: 2006Q1

REPORT INFORMATION
  Report Type: 
  Country: None (occurrence: None)
  Receive Date: 20060222
  Receipt Date: 20060206
  Transmission Date: 20060701
  Serious: Yes (Life-Threatening, Hospitalization)
  Sender: FDA-Public Use
  Company Number: SU-2006-004509

PATIENT
  Age: 67 Year
  Sex: Female
  Weight: 63.5036 kg

DRUGS (8)
  1. BENICAR [Suspect]
     Indication: HYPERTENSION
     Dosage: 20 MG QD PO
     Route: 048
     Dates: start: 20040309, end: 20060103
  2. GLUCOPHAGE [Concomitant]
  3. LIBRAX [Concomitant]
  4. PAXIL [Concomitant]
  5. ZOCOR [Concomitant]
  6. LIPITOR [Concomitant]
  7. RHINOCORT [Concomitant]
  8. ZETIA [Concomitant]

REACTIONS (1)
  - BLADDER CANCER [None]
